FAERS Safety Report 18620167 (Version 1)
Quarter: 2020Q4

REPORT INFORMATION
  Report Type: Spontaneous
  Country: US (occurrence: US)
  Receive Date: 20201215
  Receipt Date: 20201215
  Transmission Date: 20210114
  Serious: Yes (Life-Threatening, Hospitalization, Other)
  Sender: FDA-Public Use
  Company Number: US-AMGEN-USASP2020199266

PATIENT
  Age: 6 Month
  Sex: Male

DRUGS (5)
  1. ELTROMBOPAG [Concomitant]
     Active Substance: ELTROMBOPAG
     Dosage: UNK
  2. SIROLIMUS. [Concomitant]
     Active Substance: SIROLIMUS
     Dosage: UNK
  3. NEUPOGEN [Suspect]
     Active Substance: FILGRASTIM
     Indication: NEUTROPENIA
     Route: 065
  4. DEXAMETHASONE. [Concomitant]
     Active Substance: DEXAMETHASONE
     Dosage: UNK
  5. PREDNISONE. [Concomitant]
     Active Substance: PREDNISONE
     Dosage: UNK

REACTIONS (5)
  - B-cell aplasia [Unknown]
  - Platelet count decreased [Unknown]
  - Hypogammaglobulinaemia [Unknown]
  - Haemorrhage [Unknown]
  - Therapeutic product effect incomplete [Unknown]
